APPROVED DRUG PRODUCT: TACROLIMUS
Active Ingredient: TACROLIMUS
Strength: EQ 1MG BASE
Dosage Form/Route: CAPSULE;ORAL
Application: A203740 | Product #002 | TE Code: AB
Applicant: ALKEM LABORATORIES LTD
Approved: Nov 12, 2020 | RLD: No | RS: No | Type: RX